FAERS Safety Report 6821012-4 (Version None)
Quarter: 2010Q3

REPORT INFORMATION
  Report Type: 
  Country: None (occurrence: None)
  Receive Date: 20100707
  Receipt Date: 20071018
  Transmission Date: 20110219
  Serious: No
  Sender: FDA-Public Use
  Company Number: US-PFIZER INC-2007088466

PATIENT
  Sex: Female
  Weight: 63.5 kg

DRUGS (4)
  1. ZOLOFT [Suspect]
     Indication: AGGRESSION
     Route: 048
  2. ATENOLOL [Interacting]
  3. HYDROCHLOROTHIAZIDE [Concomitant]
  4. CENESTIN [Concomitant]

REACTIONS (4)
  - CHRONIC OBSTRUCTIVE PULMONARY DISEASE [None]
  - DRUG INTERACTION [None]
  - DYSPNOEA [None]
  - HYPERHIDROSIS [None]
